FAERS Safety Report 11568104 (Version 1)
Quarter: 2015Q3

REPORT INFORMATION
  Report Type: Spontaneous
  Country: US (occurrence: US)
  Receive Date: 20150916
  Receipt Date: 20150916
  Transmission Date: 20151125
  Serious: No
  Sender: FDA-Public Use
  Company Number: US-ELI_LILLY_AND_COMPANY-US200908001991

PATIENT
  Age: 85 Year
  Sex: Female

DRUGS (3)
  1. FORTEO [Suspect]
     Active Substance: TERIPARATIDE
     Dates: start: 200908
  2. FORTEO [Suspect]
     Active Substance: TERIPARATIDE
     Dosage: UNK, UNK
  3. RECLAST [Concomitant]
     Active Substance: ZOLEDRONIC ACID
     Dates: start: 200903

REACTIONS (3)
  - Wrist fracture [Recovering/Resolving]
  - Memory impairment [Unknown]
  - Impaired healing [Unknown]

NARRATIVE: CASE EVENT DATE: 200903
